FAERS Safety Report 4940909-3 (Version None)
Quarter: 2006Q1

REPORT INFORMATION
  Report Type: 
  Country: None (occurrence: None)
  Receive Date: 20060313
  Receipt Date: 20060106
  Transmission Date: 20060701
  Serious: Yes (Other)
  Sender: FDA-Public Use
  Company Number: PHEH2006US00615

PATIENT
  Sex: Female

DRUGS (12)
  1. ZOMETA [Suspect]
     Indication: METASTASES TO BONE
     Dosage: 4 MG, Q4W
     Dates: start: 20030101, end: 20051001
  2. TAXOTERE [Concomitant]
     Dosage: 47 MG, X 2 DOSES
     Dates: start: 20030109, end: 20030116
  3. GEMZAR [Concomitant]
     Dosage: 1432 MG, X 2 DOSES
     Dates: start: 20030130, end: 20030206
  4. DOXIL [Concomitant]
     Dosage: 57 MG, X 1 DOSE
     Dates: start: 20030227
  5. DOXIL [Concomitant]
     Dosage: 72 MG, X 3 DOSES
     Dates: start: 20030327, end: 20030527
  6. XELODA [Concomitant]
     Dosage: 1000 MG, BID, 2 WKS, 1 WK OFF, SOME VARIANCE
     Dates: start: 20030601, end: 20060101
  7. DEXAMETHASONE [Concomitant]
     Dosage: 20 MG, UNK
     Route: 042
     Dates: start: 20020901, end: 20030501
  8. DEXAMETHASONE [Concomitant]
     Dosage: 8 MG, UNK
     Route: 048
     Dates: start: 20020901, end: 20030101
  9. ZOLADEX [Concomitant]
     Indication: HORMONE SUPPRESSION THERAPY
     Dosage: 10.8 MG, Q3MO
     Dates: start: 20021201
  10. OXYCONTIN [Concomitant]
     Indication: PAIN
     Dates: start: 20030601
  11. DURAGESIC-100 [Concomitant]
     Indication: PAIN
     Dates: start: 20021001, end: 20030501
  12. FEMARA [Concomitant]
     Indication: ANTIOESTROGEN THERAPY
     Dosage: 2.5 MG, QD
     Dates: start: 20021001, end: 20041201

REACTIONS (3)
  - IMPAIRED HEALING [None]
  - OSTEONECROSIS [None]
  - TOOTH EXTRACTION [None]
